FAERS Safety Report 26139801 (Version 1)
Quarter: 2025Q4

REPORT INFORMATION
  Report Type: Spontaneous
  Country: US (occurrence: US)
  Receive Date: 20251210
  Receipt Date: 20251210
  Transmission Date: 20260117
  Serious: Yes (Other)
  Sender: INCYTE
  Company Number: US-EVENT-005138

PATIENT

DRUGS (1)
  1. JAKAFI [Suspect]
     Active Substance: RUXOLITINIB
     Indication: Graft versus host disease in lung
     Dosage: UNK
     Route: 065

REACTIONS (6)
  - Graft versus host disease in skin [Recovering/Resolving]
  - Graft versus host disease in lung [Unknown]
  - Liver function test increased [Unknown]
  - Feeling abnormal [Unknown]
  - Joint stiffness [Unknown]
  - Disease progression [Unknown]
